FAERS Safety Report 12380003 (Version 1)
Quarter: 2016Q2

REPORT INFORMATION
  Report Type: Spontaneous
  Country: US (occurrence: US)
  Receive Date: 20160518
  Receipt Date: 20160518
  Transmission Date: 20160815
  Serious: Yes (Hospitalization)
  Sender: FDA-Public Use
  Company Number: US-BEH-2016062789

PATIENT
  Age: 41 Year
  Sex: Female
  Weight: 92 kg

DRUGS (25)
  1. HIZENTRA [Suspect]
     Active Substance: HUMAN IMMUNOGLOBULIN G
     Indication: IMMUNODEFICIENCY COMMON VARIABLE
     Route: 058
     Dates: start: 20151123
  2. LIPITOR [Concomitant]
     Active Substance: ATORVASTATIN CALCIUM
  3. AUGMENTIN [Concomitant]
     Active Substance: AMOXICILLIN\CLAVULANATE POTASSIUM
  4. REQUIP [Concomitant]
     Active Substance: ROPINIROLE HYDROCHLORIDE
  5. SYMBICORT [Concomitant]
     Active Substance: BUDESONIDE\FORMOTEROL FUMARATE DIHYDRATE
  6. GLIPIZIDE. [Concomitant]
     Active Substance: GLIPIZIDE
  7. PLAVIX [Concomitant]
     Active Substance: CLOPIDOGREL BISULFATE
  8. LIDOCAINE. [Concomitant]
     Active Substance: LIDOCAINE
  9. METFORMIN [Concomitant]
     Active Substance: METFORMIN HYDROCHLORIDE
  10. MUCINEX [Concomitant]
     Active Substance: GUAIFENESIN
  11. LACTULOSE. [Concomitant]
     Active Substance: LACTULOSE
  12. NAPROXEN. [Concomitant]
     Active Substance: NAPROXEN
  13. ZANTAC [Concomitant]
     Active Substance: RANITIDINE HYDROCHLORIDE
  14. CYMBALTA [Concomitant]
     Active Substance: DULOXETINE HYDROCHLORIDE
  15. DIPHENHYDRAMINE. [Concomitant]
     Active Substance: DIPHENHYDRAMINE
  16. ALBUTEROL. [Concomitant]
     Active Substance: ALBUTEROL
  17. ALDACTONE [Concomitant]
     Active Substance: SPIRONOLACTONE
  18. TRAZODONE [Concomitant]
     Active Substance: TRAZODONE HYDROCHLORIDE
  19. PLAQUENIL [Concomitant]
     Active Substance: HYDROXYCHLOROQUINE SULFATE
  20. COREG [Concomitant]
     Active Substance: CARVEDILOL
  21. LEVOTHYROXINE. [Concomitant]
     Active Substance: LEVOTHYROXINE
  22. CARAFATE [Concomitant]
     Active Substance: SUCRALFATE
  23. ATIVAN [Concomitant]
     Active Substance: LORAZEPAM
  24. EPIPEN [Concomitant]
     Active Substance: EPINEPHRINE
  25. ACETAMINOPHEN. [Concomitant]
     Active Substance: ACETAMINOPHEN

REACTIONS (2)
  - Infection [Unknown]
  - Haemoglobin decreased [Unknown]

NARRATIVE: CASE EVENT DATE: 20160505
